FAERS Safety Report 10545262 (Version 3)
Quarter: 2014Q4

REPORT INFORMATION
  Report Type: Spontaneous
  Country: GB (occurrence: GB)
  Receive Date: 20141027
  Receipt Date: 20141124
  Transmission Date: 20150529
  Serious: Yes (Other)
  Sender: FDA-Public Use
  Company Number: GB-PFIZER INC-2014291943

PATIENT
  Age: 41 Year
  Sex: Male
  Weight: 165 kg

DRUGS (2)
  1. CHAMPIX [Suspect]
     Active Substance: VARENICLINE TARTRATE
     Dosage: 1 MG, 2X/DAY
     Route: 048
     Dates: start: 201409, end: 20140928
  2. CHAMPIX [Suspect]
     Active Substance: VARENICLINE TARTRATE
     Indication: EX-TOBACCO USER
     Dosage: 0.5 MG, 2X/DAY
     Route: 048
     Dates: start: 20140919, end: 201409

REACTIONS (5)
  - Sleep disorder [Recovered/Resolved]
  - Vomiting [Unknown]
  - Dysphagia [Unknown]
  - Pharyngeal mass [Recovered/Resolved]
  - Oral mucosal blistering [Recovered/Resolved]

NARRATIVE: CASE EVENT DATE: 201409
